FAERS Safety Report 8537032-8 (Version None)
Quarter: 2012Q3

REPORT INFORMATION
  Report Type: 
  Country: None (occurrence: None)
  Receive Date: 20120725
  Receipt Date: 20120719
  Transmission Date: 20120928
  Serious: Yes (Other)
  Sender: FDA-Public Use
  Company Number: DE-PFIZER INC-2012178259

PATIENT
  Age: 40 Year
  Sex: Female
  Weight: 64 kg

DRUGS (3)
  1. VENLAFAXINE HCL [Suspect]
     Indication: BORDERLINE PERSONALITY DISORDER
     Dosage: 150 MG, DAILY
  2. CITALOPRAM [Suspect]
     Indication: BORDERLINE PERSONALITY DISORDER
     Dosage: 40 MG, DAILY
     Dates: end: 20111118
  3. FOLIC ACID [Concomitant]
     Indication: PROPHYLAXIS OF NEURAL TUBE DEFECT

REACTIONS (2)
  - HYPOTHYROIDISM [None]
  - CAESAREAN SECTION [None]
